APPROVED DRUG PRODUCT: SEVELAMER CARBONATE
Active Ingredient: SEVELAMER CARBONATE
Strength: 2.4GM/PACKET
Dosage Form/Route: FOR SUSPENSION;ORAL
Application: A211316 | Product #002 | TE Code: AB
Applicant: IMPAX LABORATORIES LLC
Approved: Nov 20, 2020 | RLD: No | RS: No | Type: RX